FAERS Safety Report 23674908 (Version 1)
Quarter: 2024Q1

REPORT INFORMATION
  Report Type: Spontaneous
  Country: CN (occurrence: CN)
  Receive Date: 20240326
  Receipt Date: 20240326
  Transmission Date: 20240410
  Serious: Yes (Other)
  Sender: FDA-Public Use
  Company Number: CN-009507513-2403CHN008316

PATIENT
  Age: 31 Year
  Sex: Female
  Weight: 48 kg

DRUGS (5)
  1. CILASTATIN SODIUM\IMIPENEM [Suspect]
     Active Substance: CILASTATIN SODIUM\IMIPENEM
     Indication: Infection
     Dosage: 1 G, TID
     Route: 041
     Dates: start: 20240217, end: 20240229
  2. OSELTAMIVIR [Suspect]
     Active Substance: OSELTAMIVIR
     Indication: Infection
     Dosage: 75 MG, BID
     Route: 048
     Dates: start: 20240216, end: 20240229
  3. OSELTAMIVIR [Suspect]
     Active Substance: OSELTAMIVIR
     Indication: Respiratory tract infection
  4. VANCOMYCIN HYDROCHLORIDE [Suspect]
     Active Substance: VANCOMYCIN HYDROCHLORIDE
     Indication: Infection
     Dosage: 1 G, QID
     Route: 041
     Dates: start: 20240217, end: 20240229
  5. ETHAMSYLATE [Suspect]
     Active Substance: ETHAMSYLATE
     Indication: Prophylaxis
     Dosage: 1 G, QD
     Route: 041
     Dates: start: 20240217, end: 20240305

REACTIONS (3)
  - Bilirubin conjugated increased [Recovering/Resolving]
  - Blood bilirubin unconjugated increased [Recovering/Resolving]
  - Blood bilirubin increased [Recovering/Resolving]

NARRATIVE: CASE EVENT DATE: 20240307
